FAERS Safety Report 4823611-8 (Version None)
Quarter: 2005Q4

REPORT INFORMATION
  Report Type: 
  Country: None (occurrence: None)
  Receive Date: 20051107
  Receipt Date: 20051101
  Transmission Date: 20060501
  Serious: Yes (Hospitalization)
  Sender: FDA-Public Use
  Company Number: URSO 2005-025

PATIENT
  Age: 78 Year
  Sex: Male

DRUGS (13)
  1. URSO TABLETS (URSODESOXYCHOLIC ACID) [Suspect]
     Indication: BILIARY CIRRHOSIS PRIMARY
     Dosage: SEE IMAGE
     Route: 048
     Dates: start: 20010813, end: 20050609
  2. URSO TABLETS (URSODESOXYCHOLIC ACID) [Suspect]
     Indication: BILIARY CIRRHOSIS PRIMARY
     Dosage: SEE IMAGE
     Route: 048
     Dates: start: 20050611
  3. AMINOLEBAN EN (NUTRITION FOR HEPATIC INSUFFICIENCY) [Suspect]
     Indication: BILIARY CIRRHOSIS PRIMARY
     Dosage: SEE IMAGE
     Route: 048
     Dates: start: 20050401, end: 20050609
  4. AMINOLEBAN EN (NUTRITION FOR HEPATIC INSUFFICIENCY) [Suspect]
     Indication: BILIARY CIRRHOSIS PRIMARY
     Dosage: SEE IMAGE
     Route: 048
     Dates: start: 20050611
  5. LACTULOSE [Concomitant]
  6. NIZATIDINE [Concomitant]
  7. ALDACTONE [Concomitant]
  8. MUCOSOLVAN (AMBROXOL HYDROCHLORIDE) [Concomitant]
  9. TALION (BEPOTASTINE BESILATE) [Concomitant]
  10. TAURINE (AMINOETHYLSULFONIC ACID) [Concomitant]
  11. GLAKAY (MENATETRENONE) [Concomitant]
  12. MEDICON (DEXTROMETHORPHAN HYDROBROMIDE) [Concomitant]
  13. ADONA (AC-17) (CARBAZOCHROME SODIUM SULFONATE) [Concomitant]

REACTIONS (4)
  - BRONCHITIS [None]
  - CONDITION AGGRAVATED [None]
  - DIARRHOEA [None]
  - VARICES OESOPHAGEAL [None]
